FAERS Safety Report 13971374 (Version 5)
Quarter: 2018Q4

REPORT INFORMATION
  Report Type: Spontaneous
  Country: FR (occurrence: FR)
  Receive Date: 20170914
  Receipt Date: 20181113
  Transmission Date: 20190204
  Serious: Yes (Other)
  Sender: FDA-Public Use
  Company Number: FR-MERCK KGAA-2026258

PATIENT
  Age: 48 Year
  Sex: Female
  Weight: 77 kg

DRUGS (1)
  1. EUTHYROX [Suspect]
     Active Substance: LEVOTHYROXINE SODIUM
     Indication: HYPOTHYROIDISM
     Route: 048
     Dates: start: 20170627, end: 20170906

REACTIONS (20)
  - Headache [Recovered/Resolved]
  - Pruritus [Recovered/Resolved]
  - Insomnia [None]
  - Feeling abnormal [None]
  - Visual acuity reduced [Not Recovered/Not Resolved]
  - Arthralgia [Not Recovered/Not Resolved]
  - Alopecia [None]
  - Loss of libido [None]
  - Sleep disorder [Not Recovered/Not Resolved]
  - Irritability [None]
  - Memory impairment [None]
  - Disturbance in attention [None]
  - Weight increased [Not Recovered/Not Resolved]
  - Oedema [Not Recovered/Not Resolved]
  - Dizziness [Not Recovered/Not Resolved]
  - Fatigue [Not Recovered/Not Resolved]
  - Myalgia [Not Recovered/Not Resolved]
  - Blood thyroid stimulating hormone increased [Not Recovered/Not Resolved]
  - Tongue oedema [Not Recovered/Not Resolved]
  - Lethargy [None]

NARRATIVE: CASE EVENT DATE: 2017
